FAERS Safety Report 6270913-7 (Version None)
Quarter: 2009Q3

REPORT INFORMATION
  Report Type: 
  Country: None (occurrence: None)
  Receive Date: 20090716
  Receipt Date: 20090706
  Transmission Date: 20100115
  Serious: Yes (Hospitalization, Other)
  Sender: FDA-Public Use
  Company Number: PHHY2009GB28129

PATIENT
  Sex: Male

DRUGS (4)
  1. OXCARBAZEPINE [Suspect]
     Dosage: 2400MG
  2. CLOBAZAM [Interacting]
     Dosage: 20MG DAILY
  3. LEVETIRACETAM [Interacting]
     Dosage: 1500MG DAILY
  4. RUFINAMIDE [Interacting]
     Indication: DROP ATTACKS
     Dosage: 12000MG TO 600MG

REACTIONS (3)
  - ABNORMAL BEHAVIOUR [None]
  - AGGRESSION [None]
  - DRUG INTERACTION [None]
